FAERS Safety Report 7389142-9 (Version None)
Quarter: 2011Q2

REPORT INFORMATION
  Report Type: 
  Country: None (occurrence: None)
  Receive Date: 20110401
  Receipt Date: 20110327
  Transmission Date: 20111010
  Serious: Yes (Other)
  Sender: FDA-Public Use
  Company Number: US-US-EMD SERONO, INC.-237690K09USA

PATIENT
  Sex: Female
  Weight: 79 kg

DRUGS (7)
  1. ALLERGY MEDICATION [Concomitant]
     Indication: HYPERSENSITIVITY
     Route: 065
  2. KLONOPIN [Concomitant]
     Route: 065
  3. ANTIDEPRESSANTS [Concomitant]
     Route: 065
  4. PREMARIN [Concomitant]
     Route: 065
  5. ASTHMA MEDICATIONS [Concomitant]
     Indication: ASTHMA
     Route: 065
  6. REBIF [Suspect]
     Indication: MULTIPLE SCLEROSIS
     Route: 058
     Dates: start: 20020208
  7. PAROXETINE HCL [Concomitant]
     Route: 065

REACTIONS (5)
  - FATIGUE [None]
  - SUICIDAL IDEATION [None]
  - MEMORY IMPAIRMENT [None]
  - DEPRESSION [None]
  - CENTRAL NERVOUS SYSTEM LESION [None]
